FAERS Safety Report 9231281 (Version 1)
Quarter: 2013Q2

REPORT INFORMATION
  Report Type: Spontaneous
  Country: US (occurrence: US)
  Receive Date: 20130415
  Receipt Date: 20130415
  Transmission Date: 20140414
  Serious: Yes (Other)
  Sender: FDA-Public Use
  Company Number: US-PFIZER INC-2013112735

PATIENT
  Sex: Female

DRUGS (2)
  1. GLIPIZIDE [Suspect]
     Dosage: UNK
  2. METFORMIN [Suspect]
     Dosage: UNK

REACTIONS (3)
  - Coma [Unknown]
  - Blood glucose abnormal [Unknown]
  - Headache [Unknown]
